FAERS Safety Report 13089835 (Version 3)
Quarter: 2017Q1

REPORT INFORMATION
  Report Type: Spontaneous
  Country: US (occurrence: US)
  Receive Date: 20170105
  Receipt Date: 20170301
  Transmission Date: 20170428
  Serious: Yes (Death)
  Sender: FDA-Public Use
  Company Number: US-BAUSCH-BL-2016-032995

PATIENT
  Age: 89 Year
  Sex: Female

DRUGS (2)
  1. XENAZINE [Suspect]
     Active Substance: TETRABENAZINE
     Indication: CHOREA
     Dosage: TWO AND ONE-HALF TABLETS
     Route: 048
     Dates: start: 201402
  2. XENAZINE [Suspect]
     Active Substance: TETRABENAZINE
     Route: 048
     Dates: start: 20160809

REACTIONS (2)
  - Myocardial infarction [Fatal]
  - Prescribed overdose [Unknown]

NARRATIVE: CASE EVENT DATE: 201402
